FAERS Safety Report 15470013 (Version 2)
Quarter: 2018Q4

REPORT INFORMATION
  Report Type: Spontaneous
  Country: US (occurrence: US)
  Receive Date: 20181005
  Receipt Date: 20181120
  Transmission Date: 20190205
  Serious: No
  Sender: FDA-Public Use
  Company Number: US-ASTRAZENECA-2018SF25226

PATIENT
  Age: 53 Year
  Sex: Female
  Weight: 83.9 kg

DRUGS (10)
  1. LISINOPRIL. [Suspect]
     Active Substance: LISINOPRIL
     Indication: CARDIOVASCULAR DISORDER
     Route: 048
     Dates: start: 201503
  2. PRILOSEC [Suspect]
     Active Substance: OMEPRAZOLE MAGNESIUM
     Indication: GASTROOESOPHAGEAL REFLUX DISEASE
     Route: 048
     Dates: start: 201806
  3. CLARANEX [Concomitant]
     Indication: ILL-DEFINED DISORDER
     Route: 048
     Dates: start: 201603
  4. MOMETASONE [Concomitant]
     Active Substance: MOMETASONE
     Indication: POLYP
     Route: 045
     Dates: start: 201005
  5. SYMBICORT [Suspect]
     Active Substance: BUDESONIDE\FORMOTEROL FUMARATE DIHYDRATE
     Indication: ASTHMA
     Dosage: 2 PUFFS TWICE A DAY
     Route: 055
     Dates: start: 200905
  6. FASENRA [Suspect]
     Active Substance: BENRALIZUMAB
     Indication: STATUS ASTHMATICUS
     Route: 058
     Dates: start: 20180802
  7. ACCOLATE [Suspect]
     Active Substance: ZAFIRLUKAST
     Indication: ASTHMA
     Route: 048
     Dates: start: 1996
  8. ASPIRIN. [Concomitant]
     Active Substance: ASPIRIN
     Route: 048
  9. VITAMIN D3 [Concomitant]
     Active Substance: CHOLECALCIFEROL
  10. CALCIUM [Concomitant]
     Active Substance: CALCIUM
     Dosage: 1200 MG

REACTIONS (8)
  - Eosinophil count increased [Unknown]
  - Viral infection [Unknown]
  - Cell-mediated immune deficiency [Unknown]
  - Sinusitis [Unknown]
  - Sinusitis [Unknown]
  - Bacterial infection [Unknown]
  - Peak expiratory flow rate decreased [Unknown]
  - Sinusitis fungal [Unknown]

NARRATIVE: CASE EVENT DATE: 2001
